FAERS Safety Report 10064246 (Version 1)
Quarter: 2013Q4

REPORT INFORMATION
  Report Type: Spontaneous
  Country: US (occurrence: None)
  Receive Date: 20131113
  Receipt Date: 20131113
  Transmission Date: 20140711
  Serious: Yes (Other)
  Sender: FDA-Public Use
  Company Number: 43888

PATIENT
  Age: 75 Year
  Sex: Female
  Weight: 44.72 kg

DRUGS (1)
  1. GLASSIA [Suspect]
     Indication: ALPHA-1 ANTI-TRYPSIN DEFICIENCY
     Dosage: UNKNOWN BIWEEKLY IV
     Route: 042
     Dates: start: 201110

REACTIONS (11)
  - Cataract [None]
  - Dyspnoea [None]
  - Cough [None]
  - Bronchitis [None]
  - Bronchial secretion retention [None]
  - Weight decreased [None]
  - Tremor [None]
  - Lung infection [None]
  - Pyrexia [None]
  - Paraesthesia oral [None]
  - Balance disorder [None]
